FAERS Safety Report 9018127 (Version 1)
Quarter: 2013Q1

REPORT INFORMATION
  Report Type: Spontaneous
  Country: US (occurrence: None)
  Receive Date: 20130110
  Receipt Date: 20130110
  Transmission Date: 20140127
  Serious: Yes (Hospitalization)
  Sender: FDA-Public Use
  Company Number: None

PATIENT
  Age: 68 Year
  Sex: Male

DRUGS (9)
  1. AUGMENTIN [Suspect]
     Dates: start: 20110419, end: 20110506
  2. NOVOLOG [Concomitant]
  3. METFORMIN [Concomitant]
  4. MOBIC [Concomitant]
  5. ALEVE [Concomitant]
  6. ASPIRIN [Concomitant]
  7. LISINOPRIL [Concomitant]
  8. ROCEPHIN [Concomitant]
  9. NEURONTIN [Concomitant]

REACTIONS (11)
  - Fatigue [None]
  - Jaundice [None]
  - Pruritus [None]
  - Aspartate aminotransferase increased [None]
  - Alanine aminotransferase increased [None]
  - Blood alkaline phosphatase increased [None]
  - Blood bilirubin increased [None]
  - Drug-induced liver injury [None]
  - Hepatic infiltration eosinophilic [None]
  - Biliary tract disorder [None]
  - Cholestasis [None]
